FAERS Safety Report 22590901 (Version 1)
Quarter: 2023Q2

REPORT INFORMATION
  Report Type: Spontaneous
  Country: US (occurrence: US)
  Receive Date: 20230612
  Receipt Date: 20230612
  Transmission Date: 20230722
  Serious: No
  Sender: FDA-Public Use
  Company Number: US-PFIZER INC-PV202300101901

PATIENT
  Age: 57 Year
  Sex: Female

DRUGS (3)
  1. IBRANCE [Suspect]
     Active Substance: PALBOCICLIB
     Dosage: 100 MG DAILY FOR 21 DAYS, OFF FOR 7 DAYS
     Route: 048
     Dates: start: 20230215
  2. ELIQUIS [Concomitant]
     Active Substance: APIXABAN
     Dosage: UNK
  3. OXYCODONE [Concomitant]
     Active Substance: OXYCODONE
     Dosage: IMMEDIATE RELEASE TABLET

REACTIONS (3)
  - Hypoaesthesia [Recovering/Resolving]
  - Impaired work ability [Recovering/Resolving]
  - Hot flush [Recovering/Resolving]
